FAERS Safety Report 8317056-6 (Version None)
Quarter: 2012Q2

REPORT INFORMATION
  Report Type: 
  Country: None (occurrence: None)
  Receive Date: 20120427
  Receipt Date: 20120420
  Transmission Date: 20120825
  Serious: Yes (Hospitalization, Other)
  Sender: FDA-Public Use
  Company Number: JP-PFIZER INC-2012098765

PATIENT
  Age: 72 Year
  Sex: Male

DRUGS (1)
  1. ZITHROMAX [Suspect]
     Indication: PERIODONTAL INFECTION
     Dosage: 500 MG, 1X/DAY
     Route: 048
     Dates: start: 20120407, end: 20120409

REACTIONS (1)
  - ENTEROCOLITIS [None]
